FAERS Safety Report 15693214 (Version 1)
Quarter: 2018Q4

REPORT INFORMATION
  Report Type: Report from Study
  Country: RU (occurrence: RU)
  Receive Date: 20181206
  Receipt Date: 20181206
  Transmission Date: 20190205
  Serious: Yes (Hospitalization)
  Sender: FDA-Public Use
  Company Number: RU-ASTRAZENECA-2018SF28744

PATIENT
  Age: 58 Year
  Sex: Male
  Weight: 105 kg

DRUGS (2)
  1. INSULIN [Concomitant]
     Active Substance: INSULIN NOS
  2. FORXIGA [Suspect]
     Active Substance: DAPAGLIFLOZIN
     Indication: TYPE 2 DIABETES MELLITUS
     Route: 048
     Dates: start: 201805, end: 201809

REACTIONS (6)
  - Ketonuria [Recovering/Resolving]
  - Blood glucose increased [Unknown]
  - Red blood cells urine positive [Unknown]
  - Weight decreased [Recovered/Resolved]
  - Glycosuria [Unknown]
  - Protein urine present [Unknown]

NARRATIVE: CASE EVENT DATE: 201809
